FAERS Safety Report 6367552-6 (Version None)
Quarter: 2009Q3

REPORT INFORMATION
  Report Type: 
  Country: None (occurrence: None)
  Receive Date: 20090921
  Receipt Date: 20090916
  Transmission Date: 20100115
  Serious: Yes (Other)
  Sender: FDA-Public Use
  Company Number: JP-GENENTECH-290525

PATIENT
  Age: 77 Year
  Sex: Female
  Weight: 43 kg

DRUGS (2)
  1. GRTPA [Suspect]
     Indication: EMBOLIC STROKE
     Dosage: 0.6 MG/KG, UNK
     Route: 042
  2. HEPARIN [Concomitant]
     Indication: DRUG USE FOR UNKNOWN INDICATION
     Dosage: UNK

REACTIONS (1)
  - CARDIAC ARREST [None]
